FAERS Safety Report 7214913-9 (Version None)
Quarter: 2011Q1

REPORT INFORMATION
  Report Type: 
  Country: None (occurrence: None)
  Receive Date: 20110107
  Receipt Date: 20100510
  Transmission Date: 20110831
  Serious: No
  Sender: FDA-Public Use
  Company Number: A0858947A

PATIENT
  Age: 52 Year
  Sex: Female

DRUGS (7)
  1. NEXUM [Concomitant]
  2. LEVOTHYROXINE [Concomitant]
  3. CITRACAL [Concomitant]
  4. CENTRUM SILVER [Concomitant]
  5. ASCORBIC ACID [Concomitant]
  6. LOVAZA [Suspect]
     Dosage: 2CAP TWICE PER DAY
     Route: 048
     Dates: start: 20100201
  7. GLUCOSAMINE [Concomitant]

REACTIONS (1)
  - FLATULENCE [None]
